FAERS Safety Report 9462062 (Version 1)
Quarter: 2013Q3

REPORT INFORMATION
  Report Type: Spontaneous
  Country: PT (occurrence: PT)
  Receive Date: 20130816
  Receipt Date: 20130816
  Transmission Date: 20140515
  Serious: Yes (Life-Threatening, Other)
  Sender: FDA-Public Use
  Company Number: PT-ASTRAZENECA-2013SE62746

PATIENT
  Age: 62 Year
  Sex: Male

DRUGS (5)
  1. POTASSIUM CHLORIDE [Suspect]
     Route: 037
  2. BUPIVACAINE [Suspect]
     Route: 037
  3. BUPIVACAINE [Suspect]
     Route: 037
  4. FENTANYL [Suspect]
     Route: 037
  5. FENTANYL [Suspect]
     Route: 037

REACTIONS (4)
  - Wrong drug administered [Recovered/Resolved]
  - Respiratory failure [Recovered/Resolved]
  - Tachycardia [Recovered/Resolved]
  - Hypertension [Recovered/Resolved]
